FAERS Safety Report 8387937-6 (Version None)
Quarter: 2012Q2

REPORT INFORMATION
  Report Type: 
  Country: None (occurrence: None)
  Receive Date: 20120525
  Receipt Date: 20120521
  Transmission Date: 20120825
  Serious: Yes (Hospitalization)
  Sender: FDA-Public Use
  Company Number: US-BAYER-2011-045280

PATIENT
  Age: 34 Year
  Sex: Female
  Weight: 99.773 kg

DRUGS (5)
  1. YAZ [Suspect]
     Indication: CONTRACEPTION
     Dosage: UNK
     Dates: start: 20100301, end: 20100601
  2. YAZ [Suspect]
     Indication: ENDOMETRIOSIS
  3. CYMBALTA [Concomitant]
     Indication: DEPRESSION
     Dosage: 60 MG, UNK
     Dates: start: 20081003, end: 20100901
  4. LEXAPRO [Concomitant]
     Indication: DEPRESSION
     Dosage: UNK
  5. YAZ [Suspect]
     Indication: MENORRHAGIA

REACTIONS (3)
  - INJURY [None]
  - PULMONARY EMBOLISM [None]
  - DYSPNOEA [None]
